FAERS Safety Report 4264645-4 (Version None)
Quarter: 2004Q1

REPORT INFORMATION
  Report Type: 
  Country: None (occurrence: None)
  Receive Date: 20040105
  Receipt Date: 20031230
  Transmission Date: 20041129
  Serious: Yes (Hospitalization)
  Sender: FDA-Public Use
  Company Number: 2003183867US

PATIENT
  Age: 66 Year
  Sex: Male

DRUGS (13)
  1. ADRIAMYCIN PFS [Suspect]
     Indication: MULTIPLE MYELOMA
     Dosage: 18 MG/DAY X 4 DAYS EVERY 28 DAYS, IV
     Route: 042
     Dates: start: 20030701, end: 20030926
  2. VINCRISTINE [Suspect]
     Indication: MULTIPLE MYELOMA
     Dosage: 0.4 MG/DAY X 4 DAYS EVERY 28 DAYS, IV
     Route: 042
     Dates: start: 20030701, end: 20030926
  3. DEXAMETHASONE [Suspect]
     Indication: MULTIPLE MYELOMA
     Dosage: 40 MG/DAY X 4 DAYS EVERY 28 DAYS, ORAL
     Route: 048
     Dates: start: 20030701, end: 20030926
  4. OMEPRAZOLE [Concomitant]
  5. ARTHROTEC [Concomitant]
  6. NEURONTIN [Concomitant]
  7. FLEXERIL [Concomitant]
  8. ACTOS [Concomitant]
  9. FLOMAX [Concomitant]
  10. ZOLOFT [Concomitant]
  11. ALLEGRA [Concomitant]
  12. OXYCONTIN [Concomitant]
  13. CYTOXAN [Concomitant]

REACTIONS (15)
  - BLOOD CREATININE INCREASED [None]
  - BONE PAIN [None]
  - CHILLS [None]
  - FEBRILE NEUTROPENIA [None]
  - HAEMATOCRIT DECREASED [None]
  - HAEMOGLOBIN DECREASED [None]
  - HEART RATE INCREASED [None]
  - LABORATORY TEST ABNORMAL [None]
  - MENTAL STATUS CHANGES [None]
  - PAIN EXACERBATED [None]
  - PHARYNGOLARYNGEAL PAIN [None]
  - PLATELET COUNT DECREASED [None]
  - PYREXIA [None]
  - RESPIRATORY RATE INCREASED [None]
  - WHITE BLOOD CELL COUNT DECREASED [None]
